FAERS Safety Report 22074141 (Version 1)
Quarter: 2023Q1

REPORT INFORMATION
  Report Type: Spontaneous
  Country: US (occurrence: US)
  Receive Date: 20230308
  Receipt Date: 20230308
  Transmission Date: 20230417
  Serious: No
  Sender: FDA-Public Use
  Company Number: US-002147023-NVSC2023US053200

PATIENT
  Age: 45 Year
  Sex: Female

DRUGS (1)
  1. LEQVIO [Suspect]
     Active Substance: INCLISIRAN SODIUM
     Indication: Arteriosclerosis
     Dosage: 284 MG (284 MG/1.5 ML), OTHER (INITIAL, 3 MONTHS, EVERY 6 MONTHS)
     Route: 058

REACTIONS (2)
  - Myalgia [Unknown]
  - Diarrhoea [Unknown]
